FAERS Safety Report 7507912-0 (Version None)
Quarter: 2011Q2

REPORT INFORMATION
  Report Type: 
  Country: None (occurrence: None)
  Receive Date: 20110527
  Receipt Date: 20110523
  Transmission Date: 20111010
  Serious: Yes (Other)
  Sender: FDA-Public Use
  Company Number: US-BRISTOL-MYERS SQUIBB COMPANY-15768856

PATIENT
  Age: 69 Year
  Sex: Female

DRUGS (3)
  1. CHEMOTHERAPY [Suspect]
     Indication: BRAIN NEOPLASM
  2. COUMADIN [Suspect]
     Indication: SURGERY
     Dates: start: 20020101
  3. CHAMOMILE [Interacting]

REACTIONS (5)
  - PAIN [None]
  - FALL [None]
  - CONTUSION [None]
  - BRAIN NEOPLASM [None]
  - FOOD INTERACTION [None]
